FAERS Safety Report 25240025 (Version 1)
Quarter: 2025Q2

REPORT INFORMATION
  Report Type: Spontaneous
  Country: US (occurrence: None)
  Receive Date: 20250425
  Receipt Date: 20250425
  Transmission Date: 20250716
  Serious: Yes (Life-Threatening)
  Sender: FDA-CTU
  Company Number: None

PATIENT
  Age: 47 Year
  Sex: Female
  Weight: 83.5 kg

DRUGS (1)
  1. PIPERACILLIN SODIUM\TAZOBACTAM SODIUM [Suspect]
     Active Substance: PIPERACILLIN SODIUM\TAZOBACTAM SODIUM
     Indication: Antibiotic prophylaxis
     Route: 040
     Dates: start: 20250414, end: 20250414

REACTIONS (5)
  - Anaphylactic reaction [None]
  - Dermatitis exfoliative generalised [None]
  - Tachycardia [None]
  - Cough [None]
  - Palpitations [None]

NARRATIVE: CASE EVENT DATE: 20250414
